FAERS Safety Report 5474587-4 (Version None)
Quarter: 2007Q3

REPORT INFORMATION
  Report Type: 
  Country: None (occurrence: None)
  Receive Date: 20070928
  Receipt Date: 20070917
  Transmission Date: 20080115
  Serious: Yes (Other)
  Sender: FDA-Public Use
  Company Number: 156440USA

PATIENT
  Age: 60 Year
  Sex: Female

DRUGS (4)
  1. GABAPENTIN [Suspect]
     Dosage: (300 MG), ORAL
     Route: 048
     Dates: start: 20070516, end: 20070516
  2. ALPRAZOLAM [Concomitant]
  3. ZOLPIDEM TARTRATE [Concomitant]
  4. MAXZIDE [Concomitant]

REACTIONS (1)
  - ANAPHYLACTIC SHOCK [None]
